FAERS Safety Report 9820005 (Version 1)
Quarter: 2013Q3

REPORT INFORMATION
  Report Type: Spontaneous
  Country: US (occurrence: None)
  Receive Date: 20130924
  Receipt Date: 20130924
  Transmission Date: 20140515
  Serious: Yes (Other)
  Sender: FDA-Public Use
  Company Number: 2013000231

PATIENT
  Age: 94 Year
  Sex: Female

DRUGS (2)
  1. OSPHENA [Suspect]
     Indication: VAGINAL WALL CONGESTION
     Dates: start: 2013
  2. OSPHENA [Suspect]
     Indication: OFF LABEL USE
     Dates: start: 2013

REACTIONS (1)
  - Off label use [None]
